FAERS Safety Report 18314590 (Version 1)
Quarter: 2020Q3

REPORT INFORMATION
  Report Type: Spontaneous
  Country: US (occurrence: US)
  Receive Date: 20200925
  Receipt Date: 20200925
  Transmission Date: 20201103
  Serious: No
  Sender: FDA-Public Use
  Company Number: US-PFIZER INC-2020367567

PATIENT
  Age: 70 Year
  Sex: Male
  Weight: 94.8 kg

DRUGS (1)
  1. DILANTIN [Suspect]
     Active Substance: PHENYTOIN
     Dosage: 400 MG, DAILY (TWO 100MG, CAPSULES, BY MOUTH, IN THE MORNING AND TWO NIGHT)
     Route: 048
     Dates: start: 1978

REACTIONS (3)
  - Off label use [Unknown]
  - Body height decreased [Unknown]
  - Eye disorder [Unknown]
